FAERS Safety Report 4287734-7 (Version None)
Quarter: 2004Q1

REPORT INFORMATION
  Report Type: 
  Country: None (occurrence: None)
  Receive Date: 20040209
  Receipt Date: 20030911
  Transmission Date: 20041129
  Serious: No
  Sender: FDA-Public Use
  Company Number: US-GLAXOSMITHKLINE-A0425515A

PATIENT
  Age: 40 Year
  Sex: Male

DRUGS (1)
  1. PAXIL [Suspect]
     Indication: OBSESSIVE-COMPULSIVE DISORDER
     Dosage: 12.5MG PER DAY
     Route: 048

REACTIONS (2)
  - FATIGUE [None]
  - HYPERHIDROSIS [None]
